FAERS Safety Report 7296506-0 (Version None)
Quarter: 2011Q1

REPORT INFORMATION
  Report Type: 
  Country: None (occurrence: None)
  Receive Date: 20110216
  Receipt Date: 20110203
  Transmission Date: 20110831
  Serious: Yes (Hospitalization)
  Sender: FDA-Public Use
  Company Number: PHHY2011DE12015

PATIENT
  Sex: Male

DRUGS (1)
  1. EXTAVIA [Suspect]
     Indication: MULTIPLE SCLEROSIS
     Dosage: 0.25 ML, UNK
     Route: 058
     Dates: start: 20110125, end: 20110203

REACTIONS (5)
  - OCULAR HYPERAEMIA [None]
  - LIP ULCERATION [None]
  - ERYTHEMA [None]
  - RASH [None]
  - CHEILITIS [None]
